FAERS Safety Report 7071018-8 (Version None)
Quarter: 2010Q4

REPORT INFORMATION
  Report Type: 
  Country: None (occurrence: None)
  Receive Date: 20101027
  Receipt Date: 20101027
  Transmission Date: 20110411
  Serious: No
  Sender: FDA-Public Use
  Company Number: None

PATIENT
  Age: 69 Year
  Sex: Female
  Weight: 72.5755 kg

DRUGS (1)
  1. TOBRAMYCIN-DEXAMETHASONE [Suspect]
     Indication: CATARACT OPERATION
     Dosage: 1 DROP IN RIGHT EYE 4 TIMES DAILY OPTHALMIC
     Route: 047
     Dates: start: 20091129, end: 20091203

REACTIONS (5)
  - ECZEMA [None]
  - EYE SWELLING [None]
  - EYELID OEDEMA [None]
  - HYPERSENSITIVITY [None]
  - VISION BLURRED [None]
